FAERS Safety Report 23731939 (Version 1)
Quarter: 2024Q2

REPORT INFORMATION
  Report Type: Spontaneous
  Country: US (occurrence: None)
  Receive Date: 20240410
  Receipt Date: 20240410
  Transmission Date: 20240715
  Serious: Yes (Hospitalization)
  Sender: FDA-Public Use
  Company Number: None

PATIENT
  Sex: Male

DRUGS (8)
  1. TACROLIMUS [Suspect]
     Active Substance: TACROLIMUS
     Indication: Lung transplant
     Dosage: OTHER FREQUENCY : OTHER;?OTHER ROUTE : EVERY MORNING;?
     Route: 050
     Dates: start: 20200418
  2. ATORVASTATIN [Concomitant]
  3. BACTRIM [Concomitant]
     Active Substance: SULFAMETHOXAZOLE\TRIMETHOPRIM
  4. METOPROLOL TARTRATE [Concomitant]
     Active Substance: METOPROLOL TARTRATE
  5. PANTOPRAZOLE [Concomitant]
  6. PREDNISONE [Concomitant]
  7. TACROLIMUS [Concomitant]
  8. VALCYTE [Concomitant]
     Active Substance: VALGANCICLOVIR HYDROCHLORIDE

REACTIONS (2)
  - Therapy interrupted [None]
  - COVID-19 [None]
